FAERS Safety Report 5806613-4 (Version None)
Quarter: 2008Q3

REPORT INFORMATION
  Report Type: 
  Country: None (occurrence: None)
  Receive Date: 20080710
  Receipt Date: 20080701
  Transmission Date: 20090109
  Serious: Yes (Hospitalization, Other)
  Sender: FDA-Public Use
  Company Number: PHHY2008AU06895

PATIENT
  Sex: Male

DRUGS (7)
  1. CLOZARIL [Suspect]
     Indication: SCHIZOPHRENIA
     Dosage: 100MG
     Dates: start: 20080407, end: 20080429
  2. CLOZARIL [Suspect]
     Dosage: 12.5 MG
     Dates: start: 20080410
  3. CLOZARIL [Suspect]
     Dosage: 25 MG
     Dates: start: 20080416
  4. CLOZARIL [Suspect]
     Dosage: 50 MG
  5. CLOZARIL [Suspect]
     Dosage: 75 MG
  6. OLANZAPINE [Concomitant]
     Dosage: 30MG
  7. OLANZAPINE [Concomitant]
     Dosage: 40MG
     Dates: start: 20080101

REACTIONS (9)
  - BLOOD BILIRUBIN ABNORMAL [None]
  - EOSINOPHIL COUNT INCREASED [None]
  - LYMPHOCYTE COUNT DECREASED [None]
  - PLATELET COUNT DECREASED [None]
  - SALIVARY HYPERSECRETION [None]
  - SPLENOMEGALY [None]
  - TACHYCARDIA [None]
  - TROPONIN INCREASED [None]
  - WHITE BLOOD CELL COUNT DECREASED [None]
